FAERS Safety Report 21571057 (Version 1)
Quarter: 2022Q4

REPORT INFORMATION
  Report Type: Spontaneous
  Country: NL (occurrence: NL)
  Receive Date: 20221109
  Receipt Date: 20221109
  Transmission Date: 20230112
  Serious: Yes (Death, Hospitalization, Other)
  Sender: FDA-Public Use
  Company Number: NL-SA-2022SA457528

PATIENT
  Age: 55 Year
  Sex: Female

DRUGS (3)
  1. DOCETAXEL [Suspect]
     Active Substance: DOCETAXEL
     Indication: Neoplasm
     Dosage: 75 MG, Q3W
     Route: 042
     Dates: start: 20220706, end: 20220824
  2. MIRZOTAMAB CLEZUTOCLAX [Concomitant]
     Active Substance: MIRZOTAMAB CLEZUTOCLAX
  3. EDOXABAN [Concomitant]
     Active Substance: EDOXABAN
     Indication: Pulmonary embolism
     Dosage: 60 MG, QD
     Dates: start: 20220504

REACTIONS (3)
  - Death [Fatal]
  - Abdominal pain [Unknown]
  - Abdominal pain [Recovering/Resolving]

NARRATIVE: CASE EVENT DATE: 20220911
